FAERS Safety Report 6659580-8 (Version None)
Quarter: 2010Q1

REPORT INFORMATION
  Report Type: 
  Country: None (occurrence: None)
  Receive Date: 20100330
  Receipt Date: 20090520
  Transmission Date: 20100710
  Serious: Yes (Other)
  Sender: FDA-Public Use
  Company Number: PHHY2009TW61070

PATIENT

DRUGS (1)
  1. GLEEVEC [Suspect]
     Dosage: 400 MG, UNK
     Route: 048

REACTIONS (4)
  - EYE DISCHARGE [None]
  - MALAISE [None]
  - OCULAR HYPERAEMIA [None]
  - PANIC ATTACK [None]
